FAERS Safety Report 4281140-7 (Version None)
Quarter: 2004Q1

REPORT INFORMATION
  Report Type: 
  Country: None (occurrence: None)
  Receive Date: 20040108
  Receipt Date: 20030811
  Transmission Date: 20041129
  Serious: Yes (Other)
  Sender: FDA-Public Use
  Company Number: HQWYE039612AUG03

PATIENT
  Age: 58 Year
  Sex: Female
  Weight: 77.18 kg

DRUGS (3)
  1. PREMPRO [Suspect]
     Dosage: 0.625MG/2.5MG 0.45MG/1.5MG , ORAL
     Route: 048
     Dates: start: 20030601, end: 20030630
  2. PREMPRO [Suspect]
     Dosage: 0.625MG/2.5MG 0.45MG/1.5MG , ORAL
     Route: 048
     Dates: start: 20030701
  3. ALLEGRA [Concomitant]

REACTIONS (1)
  - RETINAL VEIN OCCLUSION [None]
